FAERS Safety Report 15428550 (Version 1)
Quarter: 2018Q3

REPORT INFORMATION
  Report Type: Spontaneous
  Country: AT (occurrence: AT)
  Receive Date: 20180926
  Receipt Date: 20180926
  Transmission Date: 20181010
  Serious: Yes (Hospitalization, Other)
  Sender: FDA-Public Use
  Company Number: AT-MACLEODS PHARMACEUTICALS US LTD-MAC2018016846

PATIENT

DRUGS (1)
  1. OLANZAPINE. [Suspect]
     Active Substance: OLANZAPINE
     Indication: SCHIZOPHRENIA
     Dosage: 300 MILLIGRAM (INJECTION)
     Route: 030
     Dates: start: 201508, end: 2016

REACTIONS (4)
  - Deep vein thrombosis [Unknown]
  - Weight increased [Not Recovered/Not Resolved]
  - Body mass index increased [Not Recovered/Not Resolved]
  - Lethargy [Unknown]

NARRATIVE: CASE EVENT DATE: 201602
